FAERS Safety Report 21649963 (Version 1)
Quarter: 2022Q4

REPORT INFORMATION
  Report Type: Spontaneous
  Country: US (occurrence: US)
  Receive Date: 20221128
  Receipt Date: 20221128
  Transmission Date: 20230113
  Serious: No
  Sender: FDA-Public Use
  Company Number: US-INSUD PHARMA-2209US04580

PATIENT

DRUGS (1)
  1. SLYND [Suspect]
     Active Substance: DROSPIRENONE
     Indication: Product used for unknown indication
     Dosage: UNK
     Route: 048
     Dates: start: 202208

REACTIONS (4)
  - Mood swings [Unknown]
  - Menstrual headache [Unknown]
  - Premenstrual pain [Unknown]
  - Amenorrhoea [Not Recovered/Not Resolved]

NARRATIVE: CASE EVENT DATE: 20220901
